FAERS Safety Report 16427493 (Version 1)
Quarter: 2019Q2

REPORT INFORMATION
  Report Type: Report from Study
  Country: US (occurrence: US)
  Receive Date: 20190613
  Receipt Date: 20190613
  Transmission Date: 20190711
  Serious: Yes (Hospitalization)
  Sender: FDA-Public Use
  Company Number: US-CELGENEUS-USA-20190602747

PATIENT
  Age: 70 Year
  Sex: Male
  Weight: 81.5 kg

DRUGS (12)
  1. 5-FU [Suspect]
     Active Substance: FLUOROURACIL
     Indication: PANCREATIC CARCINOMA METASTATIC
     Dosage: 5016 MILLIGRAM
     Route: 041
     Dates: start: 20190410
  2. ABRAXANE [Suspect]
     Active Substance: PACLITAXEL
     Indication: PANCREATIC CARCINOMA METASTATIC
     Dosage: 313.5 MILLIGRAM
     Route: 041
     Dates: start: 20190410
  3. 5-FU [Suspect]
     Active Substance: FLUOROURACIL
     Dosage: 4013 MILLIGRAM
     Route: 041
     Dates: start: 20190504
  4. ABRAXANE [Suspect]
     Active Substance: PACLITAXEL
     Dosage: 251 MILLIGRAM
     Route: 041
     Dates: start: 20190520
  5. LEUCOVORIN. [Suspect]
     Active Substance: LEUCOVORIN
     Indication: PANCREATIC CARCINOMA METASTATIC
     Dosage: 836 MILLIGRAM
     Route: 041
     Dates: start: 20190410
  6. LEUCOVORIN. [Suspect]
     Active Substance: LEUCOVORIN
     Dosage: 836 MILLIGRAM
     Route: 041
     Dates: start: 20190504
  7. 5-FU [Suspect]
     Active Substance: FLUOROURACIL
     Dosage: 4013 MILLIGRAM
     Route: 041
     Dates: start: 20190520
  8. OXALIPLATIN. [Suspect]
     Active Substance: OXALIPLATIN
     Dosage: 142 MILLIGRAM
     Route: 041
     Dates: start: 20190504
  9. OXALIPLATIN. [Suspect]
     Active Substance: OXALIPLATIN
     Dosage: 142 MILLIGRAM
     Route: 041
     Dates: start: 20190520
  10. LEUCOVORIN. [Suspect]
     Active Substance: LEUCOVORIN
     Dosage: 836 MILLIGRAM
     Route: 041
     Dates: start: 20190520
  11. ABRAXANE [Suspect]
     Active Substance: PACLITAXEL
     Dosage: 251 MILLIGRAM
     Route: 041
     Dates: start: 20190504
  12. OXALIPLATIN. [Suspect]
     Active Substance: OXALIPLATIN
     Indication: PANCREATIC CARCINOMA METASTATIC
     Dosage: 251 MILLIGRAM
     Route: 041
     Dates: start: 20190410

REACTIONS (2)
  - Pulmonary embolism [Unknown]
  - Neoplasm [Unknown]

NARRATIVE: CASE EVENT DATE: 20190529
